FAERS Safety Report 15616170 (Version 3)
Quarter: 2019Q1

REPORT INFORMATION
  Report Type: Spontaneous
  Country: US (occurrence: US)
  Receive Date: 20181114
  Receipt Date: 20190304
  Transmission Date: 20190417
  Serious: No
  Sender: FDA-Public Use
  Company Number: US-PFIZER INC-2018469845

PATIENT
  Age: 53 Year
  Sex: Female

DRUGS (11)
  1. DOCETAXEL. [Suspect]
     Active Substance: DOCETAXEL
     Indication: BREAST CANCER FEMALE
     Dosage: 158.2 MG, CYCLIC (06 CYCLES EVERY 03 WEEKS)
     Dates: start: 20130110, end: 20130423
  2. TAXOTERE [Concomitant]
     Active Substance: DOCETAXEL
     Indication: CHEMOTHERAPY
     Dosage: UNK
  3. TRAZODONE [Concomitant]
     Active Substance: TRAZODONE HYDROCHLORIDE
     Indication: CHEMOTHERAPY
     Dosage: UNK
  4. PARAPLATIN [Concomitant]
     Active Substance: CARBOPLATIN
     Indication: CHEMOTHERAPY
     Dosage: UNK
  5. DOCETAXEL. [Suspect]
     Active Substance: DOCETAXEL
     Dosage: UNK
     Dates: start: 20130110, end: 20130627
  6. TRASTUZUMAB. [Concomitant]
     Active Substance: TRASTUZUMAB
     Indication: CHEMOTHERAPY
     Dosage: UNK
  7. LISINOPRIL. [Concomitant]
     Active Substance: LISINOPRIL
     Dosage: UNK
     Dates: start: 19910101
  8. REGULAR INSULIN [Concomitant]
     Active Substance: INSULIN NOS
     Dosage: UNK
     Dates: start: 19910101
  9. NPH INSULIN [Concomitant]
     Active Substance: INSULIN BEEF
     Dosage: UNK
     Dates: start: 19910101
  10. RENVELA [Concomitant]
     Active Substance: SEVELAMER CARBONATE
     Dosage: UNK
  11. SENSIPAR [Concomitant]
     Active Substance: CINACALCET HYDROCHLORIDE
     Dosage: UNK

REACTIONS (5)
  - Madarosis [Not Recovered/Not Resolved]
  - Hair disorder [Not Recovered/Not Resolved]
  - Hair texture abnormal [Not Recovered/Not Resolved]
  - Alopecia [Not Recovered/Not Resolved]
  - Hair colour changes [Not Recovered/Not Resolved]

NARRATIVE: CASE EVENT DATE: 20131101
